FAERS Safety Report 8549595-7 (Version None)
Quarter: 2012Q3

REPORT INFORMATION
  Report Type: 
  Country: None (occurrence: None)
  Receive Date: 20120730
  Receipt Date: 20120718
  Transmission Date: 20120928
  Serious: Yes (Other)
  Sender: FDA-Public Use
  Company Number: JP-ROCHE-1092189

PATIENT
  Age: 76 Year
  Sex: Male

DRUGS (4)
  1. WARFARIN POTASSIUM [Concomitant]
     Route: 048
     Dates: start: 20120314
  2. EDARAVONE [Suspect]
     Indication: EMBOLIC STROKE
     Route: 042
     Dates: start: 20120310, end: 20120310
  3. EDARAVONE [Suspect]
     Dates: start: 20120311, end: 20120323
  4. ALTEPLASE [Suspect]
     Indication: EMBOLIC STROKE
     Route: 042
     Dates: start: 20120310, end: 20120310

REACTIONS (2)
  - POLYURIA [None]
  - RENAL DISORDER [None]
